FAERS Safety Report 6054973-4 (Version None)
Quarter: 2009Q1

REPORT INFORMATION
  Report Type: 
  Country: None (occurrence: None)
  Receive Date: 20090122
  Receipt Date: 20090113
  Transmission Date: 20090719
  Serious: Yes (Other)
  Sender: FDA-Public Use
  Company Number: 2009SP000916

PATIENT
  Age: 2 Year
  Sex: Male

DRUGS (1)
  1. DESLORATADINE [Suspect]
     Indication: VIRAL INFECTION
     Dosage: 2.5 ML, QD, PO
     Route: 048
     Dates: start: 20090108, end: 20090109

REACTIONS (4)
  - ATAXIA [None]
  - CONVULSION [None]
  - COORDINATION ABNORMAL [None]
  - ENCEPHALITIS [None]
